FAERS Safety Report 6075968-0 (Version None)
Quarter: 2009Q1

REPORT INFORMATION
  Report Type: 
  Country: None (occurrence: None)
  Receive Date: 20090209
  Receipt Date: 20090128
  Transmission Date: 20090719
  Serious: No
  Sender: FDA-Public Use
  Company Number: 2007-163018-NL

PATIENT
  Age: 43 Year
  Sex: Female

DRUGS (1)
  1. ETONOGESTREL (BATCH #: 873294-907266) [Suspect]
     Dosage: DF
     Dates: end: 20070613

REACTIONS (2)
  - BREAST CANCER [None]
  - METRORRHAGIA [None]
